FAERS Safety Report 7321657-1 (Version None)
Quarter: 2011Q1

REPORT INFORMATION
  Report Type: 
  Country: None (occurrence: None)
  Receive Date: 20110228
  Receipt Date: 20101129
  Transmission Date: 20110831
  Serious: No
  Sender: FDA-Public Use
  Company Number: A0896700A

PATIENT
  Age: 39 Year
  Sex: Female

DRUGS (3)
  1. VALTREX [Suspect]
     Indication: GENITAL HERPES
     Dosage: 500TAB PER DAY
     Route: 048
     Dates: start: 20030101
  2. FISH OIL [Concomitant]
  3. MULTIVITAMIN [Concomitant]

REACTIONS (2)
  - ALOPECIA [None]
  - HERPES VIRUS INFECTION [None]
